FAERS Safety Report 5133624-7 (Version None)
Quarter: 2006Q4

REPORT INFORMATION
  Report Type: 
  Country: None (occurrence: None)
  Receive Date: 20061024
  Receipt Date: 20060124
  Transmission Date: 20070319
  Serious: Yes (Death)
  Sender: FDA-Public Use
  Company Number: BR-ROCHE-433159

PATIENT
  Age: 59 Year
  Sex: Male
  Weight: 75.5 kg

DRUGS (7)
  1. PEG-INTERFERON ALFA 2A (RO 25-8310) [Suspect]
     Route: 058
     Dates: start: 20050916, end: 20060112
  2. PEG-INTERFERON ALFA 2A (RO 25-8310) [Suspect]
     Route: 058
     Dates: start: 20060113, end: 20060119
  3. ERITROPOIETIN [Concomitant]
     Dates: start: 20050615
  4. ATENOLOL [Concomitant]
  5. VITAMIN B COMPLEX CAP [Concomitant]
  6. FOLIC ACID [Concomitant]
  7. SALICYLIC ACID [Concomitant]

REACTIONS (1)
  - HYPERTROPHIC CARDIOMYOPATHY [None]
